FAERS Safety Report 8449553-7 (Version None)
Quarter: 2012Q2

REPORT INFORMATION
  Report Type: 
  Country: None (occurrence: None)
  Receive Date: 20120620
  Receipt Date: 20120613
  Transmission Date: 20120825
  Serious: Yes (Other)
  Sender: FDA-Public Use
  Company Number: US-AMGEN-USASP2012026782

PATIENT
  Sex: Female
  Weight: 136 kg

DRUGS (6)
  1. EXEMESTANE [Concomitant]
     Dosage: 25 MG, QD
     Route: 048
     Dates: start: 20090805
  2. CARBOPLATIN [Concomitant]
     Indication: BREAST CANCER
     Dosage: 335 MG, Q4WK
     Route: 042
     Dates: start: 20111102
  3. GEMZAR [Concomitant]
     Indication: BREAST CANCER
     Dosage: 1500 MG, Q4WK
     Route: 042
     Dates: start: 20111130
  4. XGEVA [Suspect]
     Indication: BREAST CANCER METASTATIC
     Dosage: 120 MG, QMO
     Route: 058
     Dates: start: 20110718, end: 20120306
  5. TAXOTERE [Concomitant]
  6. FASLODEX [Concomitant]
     Indication: BREAST CANCER
     Dosage: 500 MG, QMO
     Route: 030
     Dates: start: 20090814

REACTIONS (3)
  - BONE LOSS [None]
  - GINGIVAL RECESSION [None]
  - LOOSE TOOTH [None]
